FAERS Safety Report 23430380 (Version 2)
Quarter: 2024Q1

REPORT INFORMATION
  Report Type: Spontaneous
  Country: JP (occurrence: JP)
  Receive Date: 20240123
  Receipt Date: 20240208
  Transmission Date: 20240410
  Serious: Yes (Hospitalization, Other)
  Sender: FDA-Public Use
  Company Number: JP-TAKEDA-2024TJP000845

PATIENT
  Age: 76 Year
  Sex: Female

DRUGS (19)
  1. TRINTELLIX [Suspect]
     Active Substance: VORTIOXETINE HYDROBROMIDE
     Indication: Depression
     Dosage: 10 MILLIGRAM
     Route: 048
     Dates: start: 202310, end: 20240116
  2. INDAPAMIDE [Suspect]
     Active Substance: INDAPAMIDE
     Indication: Product used for unknown indication
     Dosage: UNK
     Route: 065
  3. ANASTROZOLE [Concomitant]
     Active Substance: ANASTROZOLE
     Dosage: UNK
     Route: 065
  4. FAMOTIDINE [Concomitant]
     Active Substance: FAMOTIDINE
     Dosage: UNK
     Route: 065
  5. REBAMIPIDE [Concomitant]
     Active Substance: REBAMIPIDE
     Dosage: UNK
     Route: 065
  6. CELLULASE\DIASTASE\LIPASE [Concomitant]
     Active Substance: CELLULASE\DIASTASE\LIPASE
     Dosage: UNK
     Route: 065
  7. DOMPERIDONE [Concomitant]
     Active Substance: DOMPERIDONE
     Dosage: UNK
     Route: 065
  8. FLOPROPIONE [Concomitant]
     Active Substance: FLOPROPIONE
     Dosage: UNK
     Route: 065
  9. AMLODIPINE\TELMISARTAN [Concomitant]
     Active Substance: AMLODIPINE\TELMISARTAN
     Dosage: UNK
     Route: 065
  10. FURSULTIAMINE [Concomitant]
     Active Substance: FURSULTIAMINE
     Dosage: UNK
     Route: 065
  11. URSO [Concomitant]
     Active Substance: URSODIOL
     Dosage: UNK
     Route: 065
  12. HERBAL NOS [Concomitant]
     Active Substance: HERBALS
     Dosage: UNK
     Route: 065
  13. MOSAPRIDE CITRATE [Concomitant]
     Active Substance: MOSAPRIDE CITRATE
     Dosage: UNK
     Route: 065
  14. LASCUFLOXACIN HYDROCHLORIDE [Concomitant]
     Active Substance: LASCUFLOXACIN HYDROCHLORIDE
     Dosage: UNK
     Route: 065
  15. BROTIZOLAM [Concomitant]
     Active Substance: BROTIZOLAM
     Dosage: UNK
     Route: 065
  16. SOLANAX [Concomitant]
     Active Substance: ALPRAZOLAM
     Dosage: UNK
     Route: 065
  17. SULPIRIDE [Concomitant]
     Active Substance: SULPIRIDE
     Dosage: UNK
     Route: 065
  18. DEPAS [Concomitant]
     Dosage: UNK
     Route: 065
  19. HERBALS [Concomitant]
     Active Substance: HERBALS
     Dosage: UNK
     Route: 065

REACTIONS (2)
  - Pneumonia [Unknown]
  - Inappropriate antidiuretic hormone secretion [Recovered/Resolved]

NARRATIVE: CASE EVENT DATE: 20240112
